FAERS Safety Report 7582312-6 (Version None)
Quarter: 2011Q2

REPORT INFORMATION
  Report Type: 
  Country: None (occurrence: None)
  Receive Date: 20110623
  Receipt Date: 20110609
  Transmission Date: 20111010
  Serious: Yes (Other)
  Sender: FDA-Public Use
  Company Number: RU-1186638

PATIENT
  Age: 71 Year
  Sex: Female

DRUGS (2)
  1. TRAVATAN [Suspect]
     Dosage: (OPHTHALMIC)
     Route: 047
     Dates: start: 20110602
  2. BETOPTIC [Concomitant]

REACTIONS (5)
  - CORNEAL EPITHELIUM DEFECT [None]
  - EYE IRRITATION [None]
  - WRONG DRUG ADMINISTERED [None]
  - VISUAL ACUITY REDUCED [None]
  - CORNEAL OEDEMA [None]
